FAERS Safety Report 25918187 (Version 1)
Quarter: 2025Q4

REPORT INFORMATION
  Report Type: Spontaneous
  Country: US (occurrence: US)
  Receive Date: 20251014
  Receipt Date: 20251014
  Transmission Date: 20260118
  Serious: No
  Sender: Kenvue
  Company Number: US-KENVUE-20250904128

PATIENT
  Sex: Male

DRUGS (2)
  1. TYLENOL EXTRA STRENGTH [Suspect]
     Active Substance: ACETAMINOPHEN
     Indication: Sinusitis
     Dosage: TAKING FOR YEARS
     Route: 065
  2. TYLENOL [Suspect]
     Active Substance: ACETAMINOPHEN
     Indication: Sinusitis
     Dosage: TAKING FOR YEARS
     Route: 065

REACTIONS (1)
  - Product use in unapproved indication [Unknown]
